FAERS Safety Report 7385175-7 (Version None)
Quarter: 2011Q1

REPORT INFORMATION
  Report Type: 
  Country: None (occurrence: None)
  Receive Date: 20110330
  Receipt Date: 20110328
  Transmission Date: 20110831
  Serious: Yes (Other)
  Sender: FDA-Public Use
  Company Number: US-AMGEN-QUU439355

PATIENT
  Age: 59 Year
  Sex: Female

DRUGS (4)
  1. VALSARTAN/HYDROCHLOROTHIAZIDE [Concomitant]
  2. NPLATE [Suspect]
     Indication: IDIOPATHIC THROMBOCYTOPENIC PURPURA
     Dosage: 6 A?G/KG, UNK
     Dates: start: 20070913, end: 20100610
  3. ATORVASTATIN CALCIUM [Concomitant]
  4. NPLATE [Suspect]
     Dates: start: 20070913, end: 20100610

REACTIONS (2)
  - THROMBOCYTOPENIA [None]
  - HERNIA [None]
